FAERS Safety Report 8510267-6 (Version None)
Quarter: 2012Q3

REPORT INFORMATION
  Report Type: 
  Country: None (occurrence: None)
  Receive Date: 20120713
  Receipt Date: 20120702
  Transmission Date: 20120928
  Serious: Yes (Hospitalization)
  Sender: FDA-Public Use
  Company Number: VN-BAXTER-2012BAX010988

PATIENT
  Age: 66 Year
  Sex: Female

DRUGS (1)
  1. DIANEAL PD-2 W/ DEXTROSE 2.5% [Suspect]
     Route: 033
     Dates: start: 20100419

REACTIONS (5)
  - VOMITING [None]
  - TREATMENT NONCOMPLIANCE [None]
  - DIARRHOEA [None]
  - STREPTOCOCCUS TEST POSITIVE [None]
  - PERITONITIS BACTERIAL [None]
